FAERS Safety Report 15824857 (Version 2)
Quarter: 2019Q1

REPORT INFORMATION
  Report Type: Spontaneous
  Country: US (occurrence: US)
  Receive Date: 20190115
  Receipt Date: 20190215
  Transmission Date: 20190417
  Serious: Yes (Hospitalization)
  Sender: FDA-Public Use
  Company Number: US-ASTRAZENECA-2019SE04943

PATIENT
  Age: 76 Year
  Sex: Male
  Weight: 86.2 kg

DRUGS (1)
  1. SYMBICORT [Suspect]
     Active Substance: BUDESONIDE\FORMOTEROL FUMARATE DIHYDRATE
     Indication: BRONCHITIS
     Dosage: 160/4.5 MCG, TWO INHALATIONS, TWICE DAILY
     Route: 055

REACTIONS (4)
  - Nasopharyngitis [Not Recovered/Not Resolved]
  - Device malfunction [Unknown]
  - Fall [Recovered/Resolved]
  - Spinal cord injury [Recovered/Resolved]

NARRATIVE: CASE EVENT DATE: 20160221
